FAERS Safety Report 6136815-1 (Version None)
Quarter: 2009Q1

REPORT INFORMATION
  Report Type: 
  Country: None (occurrence: None)
  Receive Date: 20090330
  Receipt Date: 20081219
  Transmission Date: 20090719
  Serious: No
  Sender: FDA-Public Use
  Company Number: US-BAYER-200916257NA

PATIENT
  Age: 53 Year
  Sex: Female

DRUGS (4)
  1. MAGNEVIST [Suspect]
     Indication: ANGIOGRAM
     Dosage: TOTAL DAILY DOSE: 35 ML
     Route: 042
     Dates: start: 20081217, end: 20081217
  2. IMITREX [Concomitant]
     Indication: MIGRAINE
  3. PREDNISONE [Concomitant]
     Indication: PREMEDICATION
     Dosage: TOTAL DAILY DOSE: 80 MG  UNIT DOSE: 40 MG
     Route: 048
     Dates: start: 20081216, end: 20081216
  4. PREDNISONE [Concomitant]
     Dosage: TOTAL DAILY DOSE: 40 MG
     Route: 048
     Dates: start: 20081217, end: 20081217

REACTIONS (2)
  - FLUSHING [None]
  - PRURITUS [None]
